FAERS Safety Report 11278282 (Version 4)
Quarter: 2015Q3

REPORT INFORMATION
  Report Type: Spontaneous
  Country: JP (occurrence: JP)
  Receive Date: 20150717
  Receipt Date: 20150924
  Transmission Date: 20151125
  Serious: Yes (Hospitalization)
  Sender: FDA-Public Use
  Company Number: JP-AMGEN-JPNSP2015071527

PATIENT
  Age: 75 Year
  Sex: Male
  Weight: 50 kg

DRUGS (3)
  1. NESP [Suspect]
     Active Substance: DARBEPOETIN ALFA
     Indication: MYELODYSPLASTIC SYNDROME
     Dosage: 240 MUG, Q2WK
     Route: 058
     Dates: start: 20140602, end: 20150520
  2. EXJADE [Concomitant]
     Active Substance: DEFERASIROX
     Dosage: 1000 MG, QD
     Route: 048
     Dates: start: 20141210, end: 20150421
  3. URSO [Concomitant]
     Active Substance: URSODIOL
     Dosage: 150 MG, TID
     Route: 048
     Dates: start: 20150422, end: 20150617

REACTIONS (1)
  - Aplasia pure red cell [Not Recovered/Not Resolved]

NARRATIVE: CASE EVENT DATE: 20150617
